FAERS Safety Report 13125356 (Version 1)
Quarter: 2017Q1

REPORT INFORMATION
  Report Type: Spontaneous
  Country: US (occurrence: US)
  Receive Date: 20170117
  Receipt Date: 20170117
  Transmission Date: 20170428
  Serious: Yes (Disabling)
  Sender: FDA-Public Use
  Company Number: None

PATIENT
  Age: 47 Year
  Sex: Female
  Weight: 54 kg

DRUGS (6)
  1. CIPRO [Suspect]
     Active Substance: CIPROFLOXACIN HYDROCHLORIDE
     Indication: GASTROINTESTINAL BACTERIAL OVERGROWTH
     Route: 048
     Dates: start: 20160427, end: 20160510
  2. MAGNESIUM [Concomitant]
     Active Substance: MAGNESIUM
  3. JUICE PLUS+ [Concomitant]
  4. AMBIEN [Concomitant]
     Active Substance: ZOLPIDEM TARTRATE
  5. LUNESTA [Concomitant]
     Active Substance: ESZOPICLONE
  6. FISH OIL [Concomitant]
     Active Substance: FISH OIL

REACTIONS (4)
  - Insomnia [None]
  - Arthralgia [None]
  - Initial insomnia [None]
  - Fatigue [None]

NARRATIVE: CASE EVENT DATE: 20160428
